FAERS Safety Report 7338539-1 (Version None)
Quarter: 2011Q1

REPORT INFORMATION
  Report Type: 
  Country: None (occurrence: None)
  Receive Date: 20110308
  Receipt Date: 20110304
  Transmission Date: 20110831
  Serious: Yes (Death, Other)
  Sender: FDA-Public Use
  Company Number: US-PFIZER INC-2011006567

PATIENT
  Age: 42 Year
  Sex: Female

DRUGS (3)
  1. TEMSIROLIMUS [Suspect]
     Indication: THYROID CANCER
     Dosage: 15MG FREQUENCY NOT PROVIDED
     Route: 042
     Dates: start: 20101105, end: 20110107
  2. SORAFENIB [Suspect]
     Indication: THYROID CANCER
     Dosage: UNK
     Route: 048
     Dates: start: 20101105, end: 20110107
  3. DIPHENHYDRAMINE [Concomitant]
     Dosage: 25 MG IVPB
     Dates: start: 20110107, end: 20110108

REACTIONS (1)
  - SUDDEN DEATH [None]
